FAERS Safety Report 17316353 (Version 1)
Quarter: 2020Q1

REPORT INFORMATION
  Report Type: Spontaneous
  Country: DE (occurrence: DE)
  Receive Date: 20200124
  Receipt Date: 20200124
  Transmission Date: 20200409
  Serious: Yes (Other)
  Sender: FDA-Public Use
  Company Number: DE-PFIZER INC-2020024670

PATIENT
  Age: 64 Year
  Sex: Male

DRUGS (25)
  1. GABAPENTIN. [Suspect]
     Active Substance: GABAPENTIN
     Indication: GENERALISED TONIC-CLONIC SEIZURE
     Dosage: UNK
  2. GABAPENTIN. [Suspect]
     Active Substance: GABAPENTIN
     Indication: AUTOMATISM EPILEPTIC
  3. OXCARBAZEPINE. [Suspect]
     Active Substance: OXCARBAZEPINE
     Indication: GENERALISED TONIC-CLONIC SEIZURE
  4. VALPROATE [Suspect]
     Active Substance: VALPROIC ACID
     Indication: GENERALISED TONIC-CLONIC SEIZURE
  5. OXCARBAZEPINE. [Suspect]
     Active Substance: OXCARBAZEPINE
     Indication: AUTOMATISM EPILEPTIC
  6. LACOSAMIDE. [Suspect]
     Active Substance: LACOSAMIDE
     Indication: AURA
     Dosage: UNK
  7. ZONISAMIDE. [Suspect]
     Active Substance: ZONISAMIDE
     Indication: GENERALISED TONIC-CLONIC SEIZURE
  8. VALPROATE [Suspect]
     Active Substance: VALPROIC ACID
     Indication: AUTOMATISM EPILEPTIC
     Dosage: UNK
  9. LAMOTRIGINE. [Suspect]
     Active Substance: LAMOTRIGINE
     Indication: AURA
  10. VALPROATE [Suspect]
     Active Substance: VALPROIC ACID
     Indication: AURA
  11. LAMOTRIGINE. [Suspect]
     Active Substance: LAMOTRIGINE
     Indication: GENERALISED TONIC-CLONIC SEIZURE
     Dosage: 900 MG, 1X/DAY
  12. PRIMIDONE. [Suspect]
     Active Substance: PRIMIDONE
     Indication: GENERALISED TONIC-CLONIC SEIZURE
  13. LACOSAMIDE. [Suspect]
     Active Substance: LACOSAMIDE
     Indication: GENERALISED TONIC-CLONIC SEIZURE
  14. LAMOTRIGINE. [Suspect]
     Active Substance: LAMOTRIGINE
     Indication: AUTOMATISM EPILEPTIC
  15. PRIMIDONE. [Suspect]
     Active Substance: PRIMIDONE
     Indication: AUTOMATISM EPILEPTIC
  16. OLANZAPINE. [Suspect]
     Active Substance: OLANZAPINE
     Dosage: UNK
  17. PRIMIDONE. [Suspect]
     Active Substance: PRIMIDONE
     Indication: AURA
     Dosage: UNK
  18. OXCARBAZEPINE. [Suspect]
     Active Substance: OXCARBAZEPINE
     Indication: AURA
     Dosage: UNK
  19. LEVETIRACETAM. [Suspect]
     Active Substance: LEVETIRACETAM
     Indication: GENERALISED TONIC-CLONIC SEIZURE
  20. ZONISAMIDE. [Suspect]
     Active Substance: ZONISAMIDE
     Indication: AUTOMATISM EPILEPTIC
  21. GABAPENTIN. [Suspect]
     Active Substance: GABAPENTIN
     Indication: AURA
  22. LEVETIRACETAM. [Suspect]
     Active Substance: LEVETIRACETAM
     Indication: AUTOMATISM EPILEPTIC
  23. ZONISAMIDE. [Suspect]
     Active Substance: ZONISAMIDE
     Indication: AURA
     Dosage: UNK
  24. LACOSAMIDE. [Suspect]
     Active Substance: LACOSAMIDE
     Indication: AUTOMATISM EPILEPTIC
  25. LEVETIRACETAM. [Suspect]
     Active Substance: LEVETIRACETAM
     Indication: AURA
     Dosage: 3000 MG, 1X/DAY

REACTIONS (5)
  - Therapeutic product effect incomplete [Recovered/Resolved]
  - Psychotic symptom [Recovered/Resolved]
  - Drug ineffective [Unknown]
  - Delusion [Recovered/Resolved]
  - Depressive symptom [Recovered/Resolved]
